FAERS Safety Report 19129483 (Version 8)
Quarter: 2025Q2

REPORT INFORMATION
  Report Type: Spontaneous
  Country: US (occurrence: US)
  Receive Date: 20210413
  Receipt Date: 20250430
  Transmission Date: 20250717
  Serious: Yes (Other)
  Sender: PFIZER
  Company Number: US-PFIZER INC-2021337031

PATIENT
  Age: 81 Year
  Sex: Female

DRUGS (2)
  1. XELJANZ XR [Suspect]
     Active Substance: TOFACITINIB CITRATE
     Dosage: 11 MG, 1X/DAY
  2. IRON [Concomitant]
     Active Substance: IRON

REACTIONS (5)
  - Fall [Unknown]
  - Spinal fracture [Unknown]
  - Hypoacusis [Recovering/Resolving]
  - Bradykinesia [Unknown]
  - Oropharyngeal pain [Unknown]
